FAERS Safety Report 8899434 (Version 1)
Quarter: 2012Q4

REPORT INFORMATION
  Report Type: 
  Country: US (occurrence: US)
  Receive Date: 20121108
  Receipt Date: 20121108
  Transmission Date: 20130627
  Serious: No
  Sender: FDA-Public Use
  Company Number: US-AMGEN-USASP2012032710

PATIENT
  Sex: Female
  Weight: 118 kg

DRUGS (7)
  1. ENBREL [Suspect]
     Indication: PRODUCT USED FOR UNKNOWN INDICATION
     Dosage: 50 mg, qwk
     Route: 058
  2. ATIVAN [Concomitant]
     Dosage: 1 mg, UNK
  3. MOTRIN [Concomitant]
     Dosage: 400 mg, UNK
  4. MULTIVITAMIN                       /00097801/ [Concomitant]
  5. ACIDOPHILUS [Concomitant]
  6. FOLIC ACID [Concomitant]
  7. PROBIOTIC [Concomitant]

REACTIONS (1)
  - Injection site erythema [Unknown]
